FAERS Safety Report 10479803 (Version 1)
Quarter: 2014Q3

REPORT INFORMATION
  Report Type: Spontaneous
  Country: CN (occurrence: CN)
  Receive Date: 20140928
  Receipt Date: 20140928
  Transmission Date: 20150326
  Serious: Yes (Other)
  Sender: FDA-Public Use
  Company Number: CN-JNJFOC-20140918055

PATIENT
  Age: 80 Year
  Sex: Female

DRUGS (1)
  1. IMODIUM [Suspect]
     Active Substance: LOPERAMIDE HYDROCHLORIDE
     Indication: ADENOCARCINOMA GASTRIC
     Dosage: TREATMENT FOR GASTRIC ADENOCARCINOMA
     Route: 048
     Dates: start: 20121208, end: 20130109

REACTIONS (5)
  - Gastrointestinal disorder [Recovered/Resolved]
  - Off label use [Unknown]
  - Ascites [Recovered/Resolved]
  - Nausea [Recovered/Resolved]
  - Abdominal tenderness [Recovered/Resolved]

NARRATIVE: CASE EVENT DATE: 20121209
